FAERS Safety Report 5216797-7 (Version None)
Quarter: 2007Q1

REPORT INFORMATION
  Report Type: 
  Country: None (occurrence: None)
  Receive Date: 20070118
  Receipt Date: 20070105
  Transmission Date: 20070707
  Serious: Yes (Hospitalization)
  Sender: FDA-Public Use
  Company Number: 163-20785-06020273

PATIENT
  Age: 68 Year
  Sex: Female

DRUGS (5)
  1. THALOMID [Suspect]
     Indication: MYELOFIBROSIS
     Dosage: 50 - 100 MG, DAILY,  ORAL
     Route: 048
     Dates: start: 20051107, end: 20051230
  2. THALOMID [Suspect]
  3. XANAX [Concomitant]
  4. CIPRO [Concomitant]
  5. PREDNISONE TAB [Concomitant]

REACTIONS (4)
  - FINGER AMPUTATION [None]
  - GANGRENE [None]
  - HYPERCOAGULATION [None]
  - NAIL BED INFECTION [None]
